FAERS Safety Report 14676261 (Version 1)
Quarter: 2018Q1

REPORT INFORMATION
  Report Type: Spontaneous
  Country: AU (occurrence: AU)
  Receive Date: 20180323
  Receipt Date: 20180323
  Transmission Date: 20180509
  Serious: Yes (Other)
  Sender: FDA-Public Use
  Company Number: AU-009507513-1803AUS008356

PATIENT
  Sex: Female

DRUGS (3)
  1. ELOCON [Suspect]
     Active Substance: MOMETASONE FUROATE
     Dosage: UNK
  2. HYDROCORTISONE. [Suspect]
     Active Substance: HYDROCORTISONE
  3. ADVANTAN [Suspect]
     Active Substance: METHYLPREDNISOLONE ACEPONATE

REACTIONS (6)
  - Pruritus [Not Recovered/Not Resolved]
  - Eczema [Not Recovered/Not Resolved]
  - Lip swelling [Not Recovered/Not Resolved]
  - Skin exfoliation [Not Recovered/Not Resolved]
  - Dry skin [Not Recovered/Not Resolved]
  - Steroid withdrawal syndrome [Not Recovered/Not Resolved]

NARRATIVE: CASE EVENT DATE: 2017
